FAERS Safety Report 12110963 (Version 1)
Quarter: 2016Q1

REPORT INFORMATION
  Report Type: Spontaneous
  Country: SE (occurrence: SE)
  Receive Date: 20160224
  Receipt Date: 20160224
  Transmission Date: 20160526
  Serious: Yes (Hospitalization, Other)
  Sender: FDA-Public Use
  Company Number: SE-ASTRAZENECA-2016SE16613

PATIENT
  Age: 68 Year
  Sex: Female

DRUGS (13)
  1. TROMBYL [Concomitant]
     Active Substance: ASPIRIN
  2. FELODIPINE. [Concomitant]
     Active Substance: FELODIPINE
  3. VALSARTAN. [Concomitant]
     Active Substance: VALSARTAN
  4. BETOLVEX [Concomitant]
     Active Substance: CYANOCOBALAMIN
  5. ONGLYZA [Suspect]
     Active Substance: SAXAGLIPTIN HYDROCHLORIDE
     Indication: TYPE 2 DIABETES MELLITUS
     Route: 048
     Dates: end: 20151214
  6. SELOKENZOC [Concomitant]
     Active Substance: METOPROLOL SUCCINATE
     Route: 048
  7. GLYCERYL TRINITRATE [Concomitant]
     Active Substance: NITROGLYCERIN
     Dosage: AS NECESSARY
     Route: 060
  8. PANODIL [Concomitant]
     Active Substance: ACETAMINOPHEN
     Dosage: AS NECESSARY
  9. FURIX [Concomitant]
     Active Substance: FUROSEMIDE
  10. ISOPHANE INSULIN [Concomitant]
     Active Substance: INSULIN NOS
  11. OMEPRAZOLE. [Concomitant]
     Active Substance: OMEPRAZOLE
  12. SIMVASTATIN. [Concomitant]
     Active Substance: SIMVASTATIN
  13. VAGIFEM [Concomitant]
     Active Substance: ESTRADIOL

REACTIONS (2)
  - Seizure [Unknown]
  - Pancreatitis [Unknown]

NARRATIVE: CASE EVENT DATE: 201512
